FAERS Safety Report 5375127-0 (Version None)
Quarter: 2007Q2

REPORT INFORMATION
  Report Type: 
  Country: None (occurrence: None)
  Receive Date: 20070629
  Receipt Date: 20061127
  Transmission Date: 20071010
  Serious: No
  Sender: FDA-Public Use
  Company Number: US-ASTRAZENECA-2006UW26263

PATIENT
  Age: 63 Year
  Sex: Male
  Weight: 74.8 kg

DRUGS (5)
  1. ZOLADEX [Suspect]
     Indication: PROSTATE CANCER
     Route: 058
  2. ALBUTEROL [Concomitant]
     Indication: LUNG DISORDER
  3. CELEBREX [Concomitant]
  4. LYRICA [Concomitant]
  5. VICODIN [Concomitant]

REACTIONS (4)
  - ARTHRALGIA [None]
  - INJECTION SITE HAEMORRHAGE [None]
  - INJECTION SITE PAIN [None]
  - MYALGIA [None]
